FAERS Safety Report 6716691-6 (Version None)
Quarter: 2010Q2

REPORT INFORMATION
  Report Type: 
  Country: None (occurrence: None)
  Receive Date: 20100510
  Receipt Date: 20100429
  Transmission Date: 20101027
  Serious: Yes (Hospitalization)
  Sender: FDA-Public Use
  Company Number: US-BIOGENIDEC-2010BI014432

PATIENT
  Age: 35 Year
  Sex: Male

DRUGS (2)
  1. AVONEX [Suspect]
     Indication: MULTIPLE SCLEROSIS
     Route: 030
     Dates: start: 20070310, end: 20070601
  2. AVONEX [Suspect]
     Route: 030
     Dates: start: 20070620, end: 20090101

REACTIONS (2)
  - APHASIA [None]
  - GASTROINTESTINAL DISORDER [None]
